FAERS Safety Report 5006366-6 (Version None)
Quarter: 2006Q2

REPORT INFORMATION
  Report Type: 
  Country: None (occurrence: None)
  Receive Date: 20060516
  Receipt Date: 20060503
  Transmission Date: 20061013
  Serious: Yes (Life-Threatening, Hospitalization, Other)
  Sender: FDA-Public Use
  Company Number: 2006060275

PATIENT
  Age: 30 Year
  Sex: Male

DRUGS (4)
  1. GEODON [Suspect]
     Indication: ILL-DEFINED DISORDER
     Dosage: 20 MG (20 MG, ONCE), INTRAMUSCULAR
  2. KLONOPIN [Concomitant]
  3. COGENTIN [Concomitant]
  4. ATIVAN [Concomitant]

REACTIONS (3)
  - CARDIO-RESPIRATORY ARREST [None]
  - CATATONIA [None]
  - FALL [None]
